FAERS Safety Report 16342175 (Version 1)
Quarter: 2019Q2

REPORT INFORMATION
  Report Type: Spontaneous
  Country: FR (occurrence: FR)
  Receive Date: 20190522
  Receipt Date: 20190522
  Transmission Date: 20190711
  Serious: Yes (Other)
  Sender: FDA-Public Use
  Company Number: FR-ABBVIE-19K-056-2789706-00

PATIENT
  Age: 71 Year
  Sex: Female

DRUGS (1)
  1. HUMIRA [Suspect]
     Active Substance: ADALIMUMAB
     Indication: UVEITIS
     Route: 058

REACTIONS (6)
  - Dizziness [Recovering/Resolving]
  - Medical device change [Unknown]
  - Chronic lymphocytic leukaemia [Unknown]
  - Fatigue [Unknown]
  - Granuloma [Unknown]
  - Uveitis [Unknown]
